FAERS Safety Report 11053767 (Version 18)
Quarter: 2019Q3

REPORT INFORMATION
  Report Type: Report from Study
  Country: BR (occurrence: BR)
  Receive Date: 20150421
  Receipt Date: 20190806
  Transmission Date: 20191004
  Serious: Yes (Other)
  Sender: FDA-Public Use
  Company Number: PHHY2015BR047075

PATIENT
  Age: 63 Year
  Sex: Female
  Weight: 85 kg

DRUGS (13)
  1. CLONAZEPAM. [Concomitant]
     Active Substance: CLONAZEPAM
     Indication: ANXIETY
     Dosage: 1 DF, QD
     Route: 048
     Dates: start: 2009
  2. PROCORALAN [Concomitant]
     Active Substance: IVABRADINE
     Indication: CARDIAC DISORDER
     Dosage: 1 DF, QD
     Route: 048
     Dates: start: 2010
  3. SANDOSTATIN LAR DEPOT [Suspect]
     Active Substance: OCTREOTIDE ACETATE
     Indication: ACROMEGALY
     Dosage: 30 MG, UNK
     Route: 065
     Dates: start: 20030101
  4. SANDOSTATIN LAR DEPOT [Suspect]
     Active Substance: OCTREOTIDE ACETATE
     Dosage: 20 MG, UNK
     Route: 030
     Dates: start: 2009
  5. FLUOXETINE [Concomitant]
     Active Substance: FLUOXETINE HYDROCHLORIDE
     Indication: ANXIETY
     Dosage: 1 DF, QD
     Route: 048
     Dates: start: 2003
  6. SANDOSTATIN LAR DEPOT [Suspect]
     Active Substance: OCTREOTIDE ACETATE
     Dosage: 10 MG, QMO
     Route: 030
     Dates: start: 2005
  7. LEVOTHYROXINE. [Concomitant]
     Active Substance: LEVOTHYROXINE
     Indication: HYPOTHYROIDISM
     Dosage: 1 DF, QD
     Route: 048
     Dates: start: 2009
  8. SANDOSTATIN LAR DEPOT [Suspect]
     Active Substance: OCTREOTIDE ACETATE
     Dosage: 10 MG, QMO
     Route: 030
     Dates: start: 2003
  9. SANDOSTATIN LAR DEPOT [Suspect]
     Active Substance: OCTREOTIDE ACETATE
     Dosage: 20 MG, QMO
     Route: 030
     Dates: start: 2008
  10. SOMALGIN [Concomitant]
     Active Substance: ASPIRIN\DIHYDROXYALUMINUM AMINOACETATE ANHYDROUS\MAGNESIUM CARBONATE
     Indication: CARDIAC DISORDER
     Dosage: 1 DF, QD
     Route: 048
     Dates: start: 2010
  11. CABERGOLINA [Concomitant]
     Active Substance: CABERGOLINE
     Indication: ACROMEGALY
     Route: 065
  12. SANDOSTATIN LAR DEPOT [Suspect]
     Active Substance: OCTREOTIDE ACETATE
     Dosage: 30 MG, QMO
     Route: 030
     Dates: start: 2009
  13. SANDOSTATIN LAR DEPOT [Suspect]
     Active Substance: OCTREOTIDE ACETATE
     Dosage: 20 MG, QMO (EVERY 28 DAYS)
     Route: 030

REACTIONS (41)
  - Neoplasm progression [Unknown]
  - Intervertebral disc injury [Not Recovered/Not Resolved]
  - Injury associated with device [Unknown]
  - Spinal disorder [Unknown]
  - Headache [Not Recovered/Not Resolved]
  - Intervertebral disc protrusion [Not Recovered/Not Resolved]
  - Weight increased [Not Recovered/Not Resolved]
  - Venous thrombosis [Unknown]
  - Nervousness [Unknown]
  - Cholelithiasis [Recovered/Resolved]
  - Memory impairment [Unknown]
  - Back pain [Unknown]
  - Adenoma benign [Unknown]
  - Carotid arterial embolus [Unknown]
  - Injection site pain [Recovered/Resolved]
  - Pain [Unknown]
  - Insomnia [Unknown]
  - Spinal pain [Not Recovered/Not Resolved]
  - Diabetes mellitus [Unknown]
  - Overweight [Unknown]
  - Exostosis [Not Recovered/Not Resolved]
  - Pyrexia [Recovering/Resolving]
  - Confusional state [Unknown]
  - Pain in extremity [Not Recovered/Not Resolved]
  - Thyroid disorder [Unknown]
  - Skin discolouration [Recovered/Resolved]
  - Carotid artery perforation [Unknown]
  - Hernia [Unknown]
  - Osteoarthritis [Not Recovered/Not Resolved]
  - Feeling abnormal [Unknown]
  - Blood cholesterol increased [Unknown]
  - Malaise [Unknown]
  - Injection site mass [Recovered/Resolved]
  - Spinal cord compression [Unknown]
  - Pituitary tumour recurrent [Unknown]
  - Thrombosis [Recovering/Resolving]
  - Head discomfort [Unknown]
  - Tinnitus [Unknown]
  - Fatigue [Unknown]
  - Blood growth hormone increased [Unknown]
  - Drug ineffective [Unknown]

NARRATIVE: CASE EVENT DATE: 2006
